FAERS Safety Report 10661894 (Version 3)
Quarter: 2015Q2

REPORT INFORMATION
  Report Type: Spontaneous
  Country: FR (occurrence: None)
  Receive Date: 20141216
  Receipt Date: 20150427
  Transmission Date: 20150821
  Serious: Yes (Hospitalization, Other)
  Sender: FDA-Public Use
  Company Number: FR2014GSK033303

PATIENT
  Age: 29 Year
  Sex: Female

DRUGS (4)
  1. PREZISTA [Suspect]
     Active Substance: DARUNAVIR ETHANOLATE
     Indication: HIV INFECTION
     Route: 048
     Dates: start: 20140127, end: 20140908
  2. NORVIR [Suspect]
     Active Substance: RITONAVIR
     Indication: HIV INFECTION
     Dosage: 80 UNK, QD, ORAL
     Route: 048
     Dates: start: 20140127, end: 20140908
  3. KALETRA (LOPINAVIR + RITONAVIR) [Concomitant]
  4. KIVEXA [Suspect]
     Active Substance: ABACAVIR SULFATE\LAMIVUDINE
     Indication: HIV INFECTION
     Route: 048
     Dates: start: 20140127

REACTIONS (8)
  - Maternal exposure during pregnancy [None]
  - Cholestasis of pregnancy [None]
  - Premature rupture of membranes [None]
  - Live birth [None]
  - Condition aggravated [None]
  - Caesarean section [None]
  - Foetal disorder [None]
  - Exposure during pregnancy [None]

NARRATIVE: CASE EVENT DATE: 20140318
